FAERS Safety Report 19745041 (Version 1)
Quarter: 2021Q3

REPORT INFORMATION
  Report Type: Spontaneous
  Country: CN (occurrence: CN)
  Receive Date: 20210825
  Receipt Date: 20210825
  Transmission Date: 20211014
  Serious: Yes (Other)
  Sender: FDA-Public Use
  Company Number: CN-PFIZER INC-202101050475

PATIENT
  Age: 23 Month
  Sex: Male

DRUGS (1)
  1. AZITHROMYCIN ANHYDROUS. [Suspect]
     Active Substance: AZITHROMYCIN ANHYDROUS
     Indication: RESPIRATORY TRACT INFECTION
     Dosage: 1 DF, 1X/DAY
     Route: 048
     Dates: start: 20210721, end: 20210721

REACTIONS (3)
  - Hypersensitivity [Recovering/Resolving]
  - Cough [Unknown]
  - Discomfort [Unknown]

NARRATIVE: CASE EVENT DATE: 20210721
